FAERS Safety Report 18523011 (Version 4)
Quarter: 2022Q4

REPORT INFORMATION
  Report Type: Report from Study
  Country: JP (occurrence: JP)
  Receive Date: 20201119
  Receipt Date: 20221110
  Transmission Date: 20230112
  Serious: Yes (Other)
  Sender: FDA-Public Use
  Company Number: JP-JNJFOC-20201126383

PATIENT

DRUGS (1)
  1. SIMPONI [Suspect]
     Active Substance: GOLIMUMAB
     Indication: Rheumatoid arthritis
     Route: 058

REACTIONS (12)
  - Pneumonia [Unknown]
  - Myocardial infarction [Unknown]
  - Colon cancer [Unknown]
  - Interstitial lung disease [Unknown]
  - Cerebral haemorrhage [Unknown]
  - Organising pneumonia [Unknown]
  - Atypical mycobacterial infection [Unknown]
  - Blood immunoglobulin G abnormal [Unknown]
  - Injury associated with device [Unknown]
  - Administration site pain [Unknown]
  - Therapeutic product effect incomplete [Unknown]
  - Paradoxical psoriasis [Unknown]
